FAERS Safety Report 10158886 (Version 1)
Quarter: 2014Q2

REPORT INFORMATION
  Report Type: Spontaneous
  Country: US (occurrence: US)
  Receive Date: 20140508
  Receipt Date: 20140508
  Transmission Date: 20141212
  Serious: No
  Sender: FDA-Public Use
  Company Number: US-BIOGENIDEC-2014BI039430

PATIENT
  Age: 33 Year
  Sex: Male
  Weight: 97 kg

DRUGS (5)
  1. TECFIDERA [Suspect]
     Indication: PRODUCT USED FOR UNKNOWN INDICATION
     Route: 048
     Dates: start: 201309, end: 201309
  2. TECFIDERA [Suspect]
     Indication: PRODUCT USED FOR UNKNOWN INDICATION
     Route: 048
     Dates: start: 201309, end: 2013
  3. LYRICA [Concomitant]
  4. ADVIL PM [Concomitant]
  5. ADVIL MIGRAINE [Concomitant]

REACTIONS (2)
  - Heart rate abnormal [Recovered/Resolved]
  - Vertigo [Recovered/Resolved]
